FAERS Safety Report 13726671 (Version 3)
Quarter: 2017Q3

REPORT INFORMATION
  Report Type: Spontaneous
  Country: TR (occurrence: TR)
  Receive Date: 20170706
  Receipt Date: 20170717
  Transmission Date: 20171127
  Serious: Yes (Other)
  Sender: FDA-Public Use
  Company Number: TR-IMPAX LABORATORIES, INC-2017-IPXL-01952

PATIENT
  Age: 17 Year
  Sex: Male

DRUGS (2)
  1. OXYBUTYNIN CHLORIDE ER [Suspect]
     Active Substance: OXYBUTYNIN CHLORIDE
     Indication: SUBSTANCE USE DISORDER
     Dosage: UNK, TWICE/ THRICE PER WEEK
     Route: 065
  2. OXYBUTYNIN CHLORIDE ER [Suspect]
     Active Substance: OXYBUTYNIN CHLORIDE
     Indication: EUPHORIC MOOD

REACTIONS (3)
  - Drug abuse [Recovered/Resolved]
  - Hallucinations, mixed [Recovering/Resolving]
  - Anxiety [Recovering/Resolving]
